FAERS Safety Report 9946447 (Version 1)
Quarter: 2014Q1

REPORT INFORMATION
  Report Type: Report from Study
  Country: US (occurrence: US)
  Receive Date: 20140303
  Receipt Date: 20140303
  Transmission Date: 20141002
  Serious: No
  Sender: FDA-Public Use
  Company Number: US-ABBVIE-13P-163-1063202-00

PATIENT
  Age: 45 Year
  Sex: Female

DRUGS (6)
  1. HUMIRA [Suspect]
     Indication: RHEUMATOID ARTHRITIS
  2. ARAVA [Concomitant]
     Indication: RHEUMATOID ARTHRITIS
  3. AMLODIPINE [Concomitant]
     Indication: BLOOD PRESSURE
     Dosage: 10 MG DAILY
  4. CYMBALTA [Concomitant]
     Indication: FIBROMYALGIA
  5. GABAPENTIN [Concomitant]
     Indication: FIBROMYALGIA
  6. HYDROCODONE [Concomitant]
     Indication: PAIN

REACTIONS (1)
  - Skin lesion [Not Recovered/Not Resolved]
